FAERS Safety Report 7217448-2 (Version None)
Quarter: 2011Q1

REPORT INFORMATION
  Report Type: 
  Country: None (occurrence: None)
  Receive Date: 20110110
  Receipt Date: 20110105
  Transmission Date: 20110831
  Serious: Yes (Death)
  Sender: FDA-Public Use
  Company Number: PHHY2010CA87385

PATIENT
  Sex: Male

DRUGS (2)
  1. SERAX [Concomitant]
     Dosage: 15 MG, UNK
  2. CLOZARIL [Suspect]
     Indication: SCHIZOPHRENIA
     Dosage: 62.5 MG, UNK
     Dates: start: 19990429

REACTIONS (1)
  - DEATH [None]
